FAERS Safety Report 7539674-5 (Version None)
Quarter: 2011Q2

REPORT INFORMATION
  Report Type: 
  Country: None (occurrence: None)
  Receive Date: 20110610
  Receipt Date: 20110525
  Transmission Date: 20111010
  Serious: No
  Sender: FDA-Public Use
  Company Number: US-B.I. PHARMACEUTICALS,INC./RIDGEFIELD-2011-BP-11983BP

PATIENT
  Sex: Female

DRUGS (5)
  1. MULTAQ [Suspect]
     Indication: ATRIAL FIBRILLATION
     Dates: start: 20110422
  2. URSODIOL [Concomitant]
     Indication: CHOLELITHIASIS
     Dates: start: 20090101
  3. SIMVASTATIN [Concomitant]
     Indication: BLOOD CHOLESTEROL INCREASED
  4. PRADAXA [Suspect]
     Indication: ATRIAL FIBRILLATION
     Dosage: 300 MG
     Route: 048
     Dates: start: 20110411
  5. LISINOPRIL [Concomitant]
     Indication: HYPERTENSION

REACTIONS (3)
  - PROTHROMBIN LEVEL INCREASED [None]
  - HAEMORRHAGE SUBCUTANEOUS [None]
  - INTERNATIONAL NORMALISED RATIO INCREASED [None]
